FAERS Safety Report 9528403 (Version 1)
Quarter: 2013Q1

REPORT INFORMATION
  Report Type: Spontaneous
  Country: US (occurrence: None)
  Receive Date: 20130314
  Receipt Date: 20130314
  Transmission Date: 20140127
  Serious: Yes (Other)
  Sender: FDA-Public Use
  Company Number: 1211USA008694

PATIENT
  Sex: Male

DRUGS (3)
  1. REBETOL [Suspect]
     Indication: HEPATITIS C
     Dates: start: 20120709
  2. VICTRELIS (BOCEPREVIR) CAPSULE [Suspect]
     Dates: start: 20120806
  3. PEGASYS (PEGINTERFERON ALFA-2A) [Concomitant]

REACTIONS (1)
  - Rash [None]
